FAERS Safety Report 7361495-7 (Version None)
Quarter: 2011Q1

REPORT INFORMATION
  Report Type: 
  Country: None (occurrence: None)
  Receive Date: 20110318
  Receipt Date: 20110307
  Transmission Date: 20110831
  Serious: Yes (Other)
  Sender: FDA-Public Use
  Company Number: PHEH2010US03423

PATIENT

DRUGS (1)
  1. AREDIA [Suspect]

REACTIONS (12)
  - PAIN [None]
  - PINEAL GLAND CYST [None]
  - OSTEONECROSIS OF JAW [None]
  - BREAST CANCER STAGE IV [None]
  - METASTASES TO BONE [None]
  - DISABILITY [None]
  - METASTASES TO CENTRAL NERVOUS SYSTEM [None]
  - INJURY [None]
  - ANHEDONIA [None]
  - ANAEMIA [None]
  - ANXIETY [None]
  - SOFT TISSUE INFLAMMATION [None]
